FAERS Safety Report 20365441 (Version 5)
Quarter: 2022Q3

REPORT INFORMATION
  Report Type: Report from Study
  Country: AR (occurrence: AR)
  Receive Date: 20220122
  Receipt Date: 20220729
  Transmission Date: 20221027
  Serious: Yes (Other)
  Sender: FDA-Public Use
  Company Number: AR-TAKEDA-2022TUS004427

PATIENT
  Age: 26 Year
  Sex: Male

DRUGS (5)
  1. IDURSULFASE [Suspect]
     Active Substance: IDURSULFASE
     Indication: Mucopolysaccharidosis II
     Dosage: 30 MILLIGRAM, 1/WEEK
     Route: 042
     Dates: start: 200701
  2. IDURSULFASE [Suspect]
     Active Substance: IDURSULFASE
     Indication: Supplementation therapy
     Dosage: 30 MILLIGRAM, 1/WEEK
     Route: 042
     Dates: start: 20070122
  3. IDURSULFASE [Suspect]
     Active Substance: IDURSULFASE
     Dosage: 30 MILLIGRAM, 1/WEEK
     Route: 042
     Dates: start: 20070122
  4. IDURSULFASE [Suspect]
     Active Substance: IDURSULFASE
     Dosage: 30 MILLIGRAM, 1/WEEK
     Route: 065
     Dates: start: 20070122
  5. IDURSULFASE [Suspect]
     Active Substance: IDURSULFASE
     Dosage: 5 MILLIGRAM/KILOGRAM, 1/WEEK
     Route: 065
     Dates: start: 20070122

REACTIONS (8)
  - Suspected COVID-19 [Recovering/Resolving]
  - Carpal tunnel syndrome [Recovering/Resolving]
  - Thrombosis [Recovering/Resolving]
  - Haemorrhage [Recovering/Resolving]
  - Pain [Recovering/Resolving]
  - Neuralgia [Recovering/Resolving]
  - Therapy interrupted [Recovering/Resolving]
  - Product dispensing error [Unknown]

NARRATIVE: CASE EVENT DATE: 20220118
